FAERS Safety Report 6657070-X (Version None)
Quarter: 2010Q1

REPORT INFORMATION
  Report Type: 
  Country: None (occurrence: None)
  Receive Date: 20100330
  Receipt Date: 20100325
  Transmission Date: 20100710
  Serious: Yes (Other)
  Sender: FDA-Public Use
  Company Number: JP-ROXANE LABORATORIES, INC.-2010-RO-00330RO

PATIENT
  Age: 68 Year
  Sex: Male

DRUGS (1)
  1. METHOTREXATE [Suspect]
     Indication: RHEUMATOID ARTHRITIS

REACTIONS (2)
  - INTERLEUKIN-2 RECEPTOR INCREASED [None]
  - LYMPHOPROLIFERATIVE DISORDER [None]
